FAERS Safety Report 6233775-X (Version None)
Quarter: 2009Q2

REPORT INFORMATION
  Report Type: 
  Country: None (occurrence: None)
  Receive Date: 20090615
  Receipt Date: 20090615
  Transmission Date: 20091009
  Serious: Yes (Other)
  Sender: FDA-Public Use
  Company Number: None

PATIENT
  Age: 63 Year
  Sex: Female
  Weight: 59.1 kg

DRUGS (1)
  1. TRANSDERM SCOP [Suspect]
     Indication: PROPHYLAXIS AGAINST MOTION SICKNESS
     Dosage: PATCH ONE EVERY THREE DAYS APPLIED BEHIND EAR
     Dates: start: 20020211, end: 20090301

REACTIONS (3)
  - AMNESIA [None]
  - FEELING ABNORMAL [None]
  - LETHARGY [None]
